FAERS Safety Report 8271177-5 (Version None)
Quarter: 2012Q1

REPORT INFORMATION
  Report Type: 
  Country: None (occurrence: None)
  Receive Date: 20120308
  Receipt Date: 20111025
  Transmission Date: 20120608
  Serious: Yes (Other)
  Sender: FDA-Public Use
  Company Number: PHEH2011US08087

PATIENT
  Age: 31 Year
  Sex: Male
  Weight: 72.6 kg

DRUGS (2)
  1. PROZAC [Concomitant]
  2. FANAPT [Suspect]
     Indication: PSYCHOTIC DISORDER
     Dosage: 6 MG, BID, ORAL
     Route: 048
     Dates: start: 20110825, end: 20111019

REACTIONS (2)
  - EJACULATION FAILURE [None]
  - ERECTILE DYSFUNCTION [None]
